FAERS Safety Report 15679351 (Version 1)
Quarter: 2018Q4

REPORT INFORMATION
  Report Type: Other
  Country: US (occurrence: US)
  Receive Date: 20181203
  Receipt Date: 20181203
  Transmission Date: 20190205
  Serious: Yes (Death, Life-Threatening, Hospitalization)
  Sender: FDA-Public Use
  Company Number: US-ATLAS PHARMACEUTICALS, LLC-2059527

PATIENT
  Age: 38 Year
  Sex: Male

DRUGS (1)
  1. METFORMIN [Suspect]
     Active Substance: METFORMIN HYDROCHLORIDE
     Indication: PRODUCT USED FOR UNKNOWN INDICATION
     Route: 048

REACTIONS (6)
  - Shock [Fatal]
  - Suicide attempt [Fatal]
  - Toxicity to various agents [Fatal]
  - Lactic acidosis [Fatal]
  - Intentional overdose [Fatal]
  - Acute kidney injury [Fatal]
